FAERS Safety Report 13329155 (Version 2)
Quarter: 2017Q2

REPORT INFORMATION
  Report Type: Spontaneous
  Country: US (occurrence: US)
  Receive Date: 20170313
  Receipt Date: 20170417
  Transmission Date: 20170830
  Serious: No
  Sender: FDA-Public Use
  Company Number: US-SHIRE-US201705279

PATIENT
  Sex: Male

DRUGS (1)
  1. VYVANSE [Suspect]
     Active Substance: LISDEXAMFETAMINE DIMESYLATE
     Indication: ATTENTION DEFICIT/HYPERACTIVITY DISORDER
     Dosage: 80 MG, OTHER(A DAY)
     Route: 048

REACTIONS (5)
  - Prescribed overdose [Unknown]
  - Drug ineffective [Unknown]
  - Palpitations [Unknown]
  - Disturbance in attention [Unknown]
  - Impulse-control disorder [Unknown]
